FAERS Safety Report 9153910 (Version 1)
Quarter: 2013Q1

REPORT INFORMATION
  Report Type: Spontaneous
  Country: US (occurrence: None)
  Receive Date: 20130306
  Receipt Date: 20130306
  Transmission Date: 20140127
  Serious: No
  Sender: FDA-Public Use
  Company Number: None

PATIENT
  Age: 41 Year
  Sex: Female
  Weight: 124.74 kg

DRUGS (1)
  1. LASTACAFT [Suspect]
     Dates: start: 20120915, end: 20121115

REACTIONS (1)
  - Corneal oedema [None]
